FAERS Safety Report 9801359 (Version 1)
Quarter: 2014Q1

REPORT INFORMATION
  Report Type: Spontaneous
  Country: US (occurrence: US)
  Receive Date: 20140107
  Receipt Date: 20140107
  Transmission Date: 20141002
  Serious: Yes (Other)
  Sender: FDA-Public Use
  Company Number: US-GLAXOSMITHKLINE-A1049219A

PATIENT
  Age: 44 Year
  Sex: Female

DRUGS (11)
  1. BENLYSTA [Suspect]
     Indication: SYSTEMIC LUPUS ERYTHEMATOSUS
     Route: 042
     Dates: start: 20131011
  2. PLAQUENIL [Concomitant]
  3. IMURAN [Concomitant]
  4. PREDNISONE [Concomitant]
  5. SYNTHROID [Concomitant]
  6. LOSARTAN WITH HYDROCHLOROTHIAZIDE [Concomitant]
  7. TOPAMAX [Concomitant]
  8. ESTRACE [Concomitant]
  9. TRAZODONE [Concomitant]
  10. CYMBALTA [Concomitant]
  11. PROTONIX [Concomitant]

REACTIONS (1)
  - Urinary tract infection [Recovering/Resolving]
